FAERS Safety Report 9391189 (Version 1)
Quarter: 2013Q3

REPORT INFORMATION
  Report Type: Spontaneous
  Country: DK (occurrence: DK)
  Receive Date: 20130709
  Receipt Date: 20130709
  Transmission Date: 20140515
  Serious: Yes (Life-Threatening, Hospitalization)
  Sender: FDA-Public Use
  Company Number: DK-B.I. PHARMACEUTICALS,INC./RIDGEFIELD-2013-BI-19710GD

PATIENT
  Age: 79 Year
  Sex: Male

DRUGS (1)
  1. PRADAXA [Suspect]
     Indication: ATRIAL FIBRILLATION
     Dosage: 300 MG

REACTIONS (9)
  - Toxicity to various agents [Not Recovered/Not Resolved]
  - Renal failure [Unknown]
  - Gastrointestinal haemorrhage [Unknown]
  - Intestinal ischaemia [Unknown]
  - Procedural haemorrhage [Unknown]
  - Coagulopathy [Unknown]
  - Intra-abdominal haemorrhage [Unknown]
  - Fall [Unknown]
  - Respiratory failure [Unknown]
